FAERS Safety Report 17599013 (Version 1)
Quarter: 2020Q1

REPORT INFORMATION
  Report Type: Report from Study
  Country: CO (occurrence: CO)
  Receive Date: 20200330
  Receipt Date: 20200330
  Transmission Date: 20200409
  Serious: Yes (Hospitalization)
  Sender: FDA-Public Use
  Company Number: CO-ROCHE-2525354

PATIENT
  Sex: Female

DRUGS (2)
  1. XELODA [Suspect]
     Active Substance: CAPECITABINE
     Indication: PRODUCT USED FOR UNKNOWN INDICATION
     Route: 048
  2. HERCEPTIN [Suspect]
     Active Substance: TRASTUZUMAB
     Indication: PRODUCT USED FOR UNKNOWN INDICATION
     Route: 065

REACTIONS (9)
  - Tachycardia [Unknown]
  - Liver disorder [Unknown]
  - Vomiting [Unknown]
  - Respiratory tract infection [Unknown]
  - Swelling [Unknown]
  - Bone pain [Unknown]
  - Cardiac disorder [Unknown]
  - Lung disorder [Unknown]
  - Musculoskeletal pain [Unknown]
